FAERS Safety Report 5050243-1 (Version None)
Quarter: 2006Q2

REPORT INFORMATION
  Report Type: 
  Country: None (occurrence: None)
  Receive Date: 20060614
  Receipt Date: 20060302
  Transmission Date: 20061013
  Serious: Yes (Other)
  Sender: FDA-Public Use
  Company Number: 434634

PATIENT
  Sex: Female

DRUGS (4)
  1. BONIVA [Suspect]
     Indication: OSTEOPOROSIS
     Dosage: 150 MG 1 PER MONTH ORAL
     Route: 048
     Dates: start: 20051101
  2. FOSAMAX [Concomitant]
  3. NEXIUM [Concomitant]
  4. CALTRATE (CALCIUM CARBONATE) [Concomitant]

REACTIONS (1)
  - PAIN IN JAW [None]
